FAERS Safety Report 7680697-3 (Version None)
Quarter: 2011Q3

REPORT INFORMATION
  Report Type: 
  Country: None (occurrence: None)
  Receive Date: 20110812
  Receipt Date: 20110808
  Transmission Date: 20111222
  Serious: Yes (Other)
  Sender: FDA-Public Use
  Company Number: ES-ROXANE LABORATORIES, INC.-2011-RO-01120RO

PATIENT
  Age: 48 Year
  Sex: Female

DRUGS (5)
  1. CYCLOPHOSPHAMIDE [Suspect]
     Indication: BREAST CANCER
     Route: 042
  2. DOXORUBICIN HCL [Suspect]
     Indication: BREAST CANCER
     Route: 042
  3. DOCETAXEL [Suspect]
     Indication: BREAST CANCER
     Route: 042
  4. TRASTUZUMAB [Suspect]
     Indication: BREAST CANCER
     Route: 042
  5. TRASTUZUMAB [Suspect]
     Route: 042

REACTIONS (2)
  - LYMPHOEDEMA [None]
  - LYMPH NODE FIBROSIS [None]
